FAERS Safety Report 5526571-X (Version None)
Quarter: 2007Q4

REPORT INFORMATION
  Report Type: 
  Country: None (occurrence: None)
  Receive Date: 20071127
  Receipt Date: 20071113
  Transmission Date: 20080405
  Serious: Yes (Hospitalization)
  Sender: FDA-Public Use
  Company Number: US-AMGEN-QUU252268

PATIENT
  Sex: Male

DRUGS (1)
  1. ENBREL [Suspect]
     Indication: ANKYLOSING SPONDYLITIS
     Route: 058
     Dates: start: 20021201

REACTIONS (4)
  - BLOOD COUNT ABNORMAL [None]
  - GASTROINTESTINAL ULCER HAEMORRHAGE [None]
  - INFLUENZA [None]
  - NASOPHARYNGITIS [None]
